FAERS Safety Report 22359524 (Version 1)
Quarter: 2023Q2

REPORT INFORMATION
  Report Type: Spontaneous
  Country: US (occurrence: US)
  Receive Date: 20230524
  Receipt Date: 20230524
  Transmission Date: 20230721
  Serious: Yes (Other)
  Sender: FDA-Public Use
  Company Number: US-Inventia-000629

PATIENT
  Age: 33 Year
  Sex: Female

DRUGS (28)
  1. LANSOPRAZOLE [Suspect]
     Active Substance: LANSOPRAZOLE
     Indication: Product used for unknown indication
  2. QUETIAPINE [Suspect]
     Active Substance: QUETIAPINE
     Indication: Product used for unknown indication
     Dosage: 50 MG Q6 HOURS AND TITRATED TO 100 MG
  3. AMPHOTERICIN B [Concomitant]
     Active Substance: AMPHOTERICIN B
  4. ITRACONAZOLE [Concomitant]
     Active Substance: ITRACONAZOLE
  5. TRAZODONE [Concomitant]
     Active Substance: TRAZODONE HYDROCHLORIDE
     Dosage: 100 MG NIGHTLY
  6. LORAZEPAM [Concomitant]
     Active Substance: LORAZEPAM
  7. CLONIDINE [Concomitant]
     Active Substance: CLONIDINE
     Dosage: 0.2 MG TID
  8. PROPOFOL [Concomitant]
     Active Substance: PROPOFOL
     Indication: Sedation
  9. MIDAZOLAM [Concomitant]
     Active Substance: MIDAZOLAM
     Indication: Hypertriglyceridaemia
  10. DEXMEDETOMIDINE [Concomitant]
     Active Substance: DEXMEDETOMIDINE
  11. DILAUDID [Concomitant]
     Active Substance: HYDROMORPHONE HYDROCHLORIDE
  12. NOREPINEPHRINE [Concomitant]
     Active Substance: NOREPINEPHRINE
  13. FENTANYL [Concomitant]
     Active Substance: FENTANYL
  14. MIDODRINE [Concomitant]
     Active Substance: MIDODRINE
  15. SOLU-MEDROL [Concomitant]
     Active Substance: METHYLPREDNISOLONE SODIUM SUCCINATE
  16. CARVEDILOL [Concomitant]
     Active Substance: CARVEDILOL
  17. FUROSEMIDE [Concomitant]
     Active Substance: FUROSEMIDE
  18. BUMEX [Concomitant]
     Active Substance: BUMETANIDE
  19. BENADRYL [Concomitant]
     Active Substance: DIPHENHYDRAMINE HYDROCHLORIDE
  20. DEXTROMETHORPHAN [Concomitant]
     Active Substance: DEXTROMETHORPHAN
  21. HALDOL [Concomitant]
     Active Substance: HALOPERIDOL
  22. HYDROXYZINE [Concomitant]
     Active Substance: HYDROXYZINE HYDROCHLORIDE
  23. OXYCODONE HYDROCHLORIDE [Concomitant]
     Active Substance: OXYCODONE HYDROCHLORIDE
  24. GABAPENTIN [Concomitant]
     Active Substance: GABAPENTIN
  25. HEPARIN [Concomitant]
     Active Substance: HEPARIN SODIUM
  26. LITHIUM [Concomitant]
     Active Substance: LITHIUM
  27. SYNTHROID [Concomitant]
     Active Substance: LEVOTHYROXINE SODIUM
  28. VENLAFAXINE [Concomitant]
     Active Substance: VENLAFAXINE HYDROCHLORIDE

REACTIONS (1)
  - Drug reaction with eosinophilia and systemic symptoms [Recovered/Resolved]
